FAERS Safety Report 8855369 (Version 1)
Quarter: 2012Q4

REPORT INFORMATION
  Report Type: 
  Country: US (occurrence: US)
  Receive Date: 20121023
  Receipt Date: 20121023
  Transmission Date: 20130627
  Serious: No
  Sender: FDA-Public Use
  Company Number: US-AMGEN-USASP2012059528

PATIENT
  Sex: Female
  Weight: 68.03 kg

DRUGS (8)
  1. ENBREL [Suspect]
     Indication: PRODUCT USED FOR UNKNOWN INDICATION
     Dosage: 50 mg, qwk
     Route: 058
     Dates: start: 201206
  2. METHOTREXATE [Concomitant]
     Dosage: 2.5 mg
  3. SYNTHROID [Concomitant]
     Dosage: 200 mug, UNK
  4. FOLIC ACID [Concomitant]
     Dosage: UNK
  5. VITAMIN C                          /00008001/ [Concomitant]
     Dosage: 500 mg, UNK
  6. ACIDOPHILUS [Concomitant]
     Dosage: UNK
  7. VITAMIN B [Concomitant]
     Dosage: UNK
  8. HUMIRA [Concomitant]
     Dosage: UNK
     Dates: start: 20120926

REACTIONS (5)
  - Drug ineffective [Unknown]
  - Ear discomfort [Unknown]
  - Hearing impaired [Unknown]
  - Injection site erythema [Recovered/Resolved]
  - Injection site pruritus [Recovered/Resolved]
